FAERS Safety Report 15543187 (Version 3)
Quarter: 2018Q4

REPORT INFORMATION
  Report Type: Spontaneous
  Country: US (occurrence: US)
  Receive Date: 20181023
  Receipt Date: 20181127
  Transmission Date: 20190205
  Serious: No
  Sender: FDA-Public Use
  Company Number: US-PFIZER INC-2017403644

PATIENT
  Age: 63 Year
  Sex: Female
  Weight: 73.47 kg

DRUGS (2)
  1. GABAPENTIN. [Suspect]
     Active Substance: GABAPENTIN
     Indication: TOXIC NEUROPATHY
     Dosage: 600 MG, 3X/DAY (600 TABLETS)
     Route: 048
     Dates: start: 20170518
  2. GABAPENTIN. [Suspect]
     Active Substance: GABAPENTIN
     Indication: POLYNEUROPATHY

REACTIONS (1)
  - Drug ineffective for unapproved indication [Unknown]
